FAERS Safety Report 6399999-6 (Version None)
Quarter: 2009Q4

REPORT INFORMATION
  Report Type: 
  Country: None (occurrence: None)
  Receive Date: 20091014
  Receipt Date: 20091005
  Transmission Date: 20100525
  Serious: Yes (Death, Other)
  Sender: FDA-Public Use
  Company Number: TR-ELI_LILLY_AND_COMPANY-TR200910000978

PATIENT
  Age: 55 Year
  Sex: Male

DRUGS (2)
  1. HUMULIN R [Suspect]
     Indication: DIABETES MELLITUS
     Dosage: 18 IU, DAILY (1/D)
     Route: 058
  2. HUMULIN N [Suspect]
     Indication: DIABETES MELLITUS
     Dosage: 18 IU, DAILY (1/D)
     Route: 058

REACTIONS (2)
  - CARDIO-RESPIRATORY ARREST [None]
  - TONGUE NEOPLASM MALIGNANT STAGE UNSPECIFIED [None]
